FAERS Safety Report 16494369 (Version 1)
Quarter: 2019Q2

REPORT INFORMATION
  Report Type: Other
  Country: NL (occurrence: GR)
  Receive Date: 20190628
  Receipt Date: 20190628
  Transmission Date: 20190711
  Serious: Yes (Life-Threatening, Hospitalization, Other)
  Sender: FDA-Public Use
  Company Number: NL-KOWA-18EU003522

PATIENT
  Age: 55 Year
  Sex: Male

DRUGS (2)
  1. LIVAZO [Suspect]
     Active Substance: PITAVASTATIN CALCIUM
     Indication: HYPERCHOLESTEROLAEMIA
     Dosage: UNK
     Route: 048
     Dates: start: 201804
  2. ENIT [Suspect]
     Active Substance: ENALAPRIL MALEATE\NITRENDIPINE
     Indication: HYPERTENSION
     Dosage: 10MG/20MG, QD
     Route: 048
     Dates: start: 2013

REACTIONS (1)
  - Pancreatitis acute [Recovered/Resolved]

NARRATIVE: CASE EVENT DATE: 201805
